FAERS Safety Report 6483609-3 (Version None)
Quarter: 2009Q4

REPORT INFORMATION
  Report Type: 
  Country: None (occurrence: None)
  Receive Date: 20091209
  Receipt Date: 20091130
  Transmission Date: 20100525
  Serious: Yes (Hospitalization)
  Sender: FDA-Public Use
  Company Number: PHEH2009US14663

PATIENT
  Sex: Male

DRUGS (2)
  1. EXJADE [Suspect]
     Indication: METASTASES TO BONE
     Dosage: 250 MG, QD
     Route: 048
     Dates: start: 20090901
  2. EXJADE [Suspect]
     Dosage: 500 MG DAILY
     Route: 048
     Dates: start: 20091001, end: 20091104

REACTIONS (3)
  - JOINT SURGERY [None]
  - RASH [None]
  - VOMITING [None]
